FAERS Safety Report 5505137-1 (Version None)
Quarter: 2007Q4

REPORT INFORMATION
  Report Type: 
  Country: None (occurrence: None)
  Receive Date: 20071031
  Receipt Date: 20071019
  Transmission Date: 20080405
  Serious: Yes (Hospitalization)
  Sender: FDA-Public Use
  Company Number: RENA-12325

PATIENT
  Age: 73 Year
  Sex: Female

DRUGS (1)
  1. RENAGEL [Suspect]
     Indication: HYPERPHOSPHATAEMIA
     Dosage: 6.4 G DAILY PO
     Route: 048

REACTIONS (3)
  - BLOOD DISORDER [None]
  - GASTRIC ULCER HAEMORRHAGE [None]
  - INFECTION [None]
